FAERS Safety Report 14570045 (Version 1)
Quarter: 2018Q1

REPORT INFORMATION
  Report Type: Spontaneous
  Country: US (occurrence: US)
  Receive Date: 20180225
  Receipt Date: 20180225
  Transmission Date: 20180509
  Serious: No
  Sender: FDA-Public Use
  Company Number: US-JNJFOC-20180200060

PATIENT
  Age: 89 Year
  Sex: Female
  Weight: 39.01 kg

DRUGS (3)
  1. TYLENOL EXTRA STRENGTH [Suspect]
     Active Substance: ACETAMINOPHEN
     Indication: BACK PAIN
     Dosage: ONE PILL MORNING AND NIGHT
     Route: 048
  2. ETODOLAC. [Concomitant]
     Active Substance: ETODOLAC
     Indication: PAIN MANAGEMENT
     Route: 065
  3. METHOTREXATE. [Concomitant]
     Active Substance: METHOTREXATE
     Indication: ARTHRITIS
     Route: 065

REACTIONS (2)
  - Incorrect dose administered [Unknown]
  - Expired product administered [Unknown]
